FAERS Safety Report 5597950-X (Version None)
Quarter: 2008Q1

REPORT INFORMATION
  Report Type: 
  Country: None (occurrence: None)
  Receive Date: 20080116
  Receipt Date: 20080108
  Transmission Date: 20080703
  Serious: Yes (Other)
  Sender: FDA-Public Use
  Company Number: WAES 0801USA01597

PATIENT

DRUGS (2)
  1. DECADRON [Suspect]
     Indication: MULTIPLE MYELOMA
     Dosage: 40 MG/DAILY PO
     Route: 048
  2. BORTEZOMIB [Concomitant]

REACTIONS (1)
  - MENINGITIS MENINGOCOCCAL [None]
